FAERS Safety Report 5846222-4 (Version None)
Quarter: 2008Q3

REPORT INFORMATION
  Report Type: 
  Country: None (occurrence: None)
  Receive Date: 20080813
  Receipt Date: 20070628
  Transmission Date: 20090109
  Serious: Yes (Hospitalization, Disabling)
  Sender: FDA-Public Use
  Company Number: US172467

PATIENT
  Age: 64 Year
  Sex: Female
  Weight: 88 kg

DRUGS (7)
  1. ENBREL [Suspect]
     Indication: RHEUMATOID ARTHRITIS
     Dosage: 25 MG, 2 IN 1 WEEKS, SC
     Route: 058
     Dates: start: 20051114, end: 20060101
  2. ISONIAZID [Suspect]
     Indication: LATENT TUBERCULOSIS
     Dosage: 300 MG, 1 IN 1 DAYS;
     Dates: start: 20050906, end: 20060105
  3. PREDNISONE [Concomitant]
  4. AMLODIPINE BESYLATE [Concomitant]
  5. PYRIDOXINE (PYRIDOXINE) [Concomitant]
  6. ACTONEL (ACTONEL) [Concomitant]
  7. PERINDOPRIL ERBUMINE [Concomitant]

REACTIONS (5)
  - BEDRIDDEN [None]
  - BLOOD POTASSIUM DECREASED [None]
  - INAPPROPRIATE ANTIDIURETIC HORMONE SECRETION [None]
  - OEDEMA PERIPHERAL [None]
  - PARAPARESIS [None]
